FAERS Safety Report 5071625-8 (Version None)
Quarter: 2006Q3

REPORT INFORMATION
  Report Type: 
  Country: None (occurrence: None)
  Receive Date: 20060803
  Receipt Date: 20060803
  Transmission Date: 20061208
  Serious: No
  Sender: FDA-Public Use
  Company Number: None

PATIENT
  Age: 64 Year
  Sex: Male

DRUGS (2)
  1. CIPRO XR [Suspect]
     Indication: INFECTION
     Dosage: 1000MG  QD  PO
     Route: 048
     Dates: start: 20060801, end: 20060802
  2. FLOMAX [Concomitant]

REACTIONS (1)
  - ILL-DEFINED DISORDER [None]
